FAERS Safety Report 16244927 (Version 1)
Quarter: 2019Q2

REPORT INFORMATION
  Report Type: Spontaneous
  Country: PL (occurrence: PL)
  Receive Date: 20190426
  Receipt Date: 20190426
  Transmission Date: 20190711
  Serious: Yes (Death, Other)
  Sender: FDA-Public Use
  Company Number: PL-JNJFOC-20190431446

PATIENT

DRUGS (1)
  1. IBRUTINIB [Suspect]
     Active Substance: IBRUTINIB
     Indication: PRODUCT USED FOR UNKNOWN INDICATION
     Route: 065

REACTIONS (11)
  - Infection [Fatal]
  - Ischaemia [Unknown]
  - Sinusitis [Recovering/Resolving]
  - Diarrhoea [Recovering/Resolving]
  - Atrial fibrillation [Unknown]
  - Pneumonia [Fatal]
  - Multiple organ dysfunction syndrome [Fatal]
  - Arthralgia [Unknown]
  - Disease progression [Fatal]
  - Cerebrovascular accident [Fatal]
  - Haemorrhage [Unknown]
